FAERS Safety Report 23189125 (Version 2)
Quarter: 2023Q4

REPORT INFORMATION
  Report Type: Report from Study
  Country: US (occurrence: US)
  Receive Date: 20231115
  Receipt Date: 20231121
  Transmission Date: 20240110
  Serious: No
  Sender: FDA-Public Use
  Company Number: US-SA-SAC20231109001622

PATIENT
  Age: 7 Year
  Sex: Female

DRUGS (1)
  1. DUPILUMAB [Suspect]
     Active Substance: DUPILUMAB
     Indication: Asthma
     Dosage: 200 MG, QOW
     Route: 058
     Dates: start: 20230725

REACTIONS (4)
  - Injection site vesicles [Unknown]
  - Injection site pain [Unknown]
  - Dyspnoea [Unknown]
  - Headache [Unknown]

NARRATIVE: CASE EVENT DATE: 20230101
